FAERS Safety Report 6688498-X (Version None)
Quarter: 2010Q2

REPORT INFORMATION
  Report Type: 
  Country: None (occurrence: None)
  Receive Date: 20100420
  Receipt Date: 20100416
  Transmission Date: 20101027
  Serious: Yes (Death)
  Sender: FDA-Public Use
  Company Number: JP-BAYER-200914887BYL

PATIENT
  Age: 74 Year
  Sex: Male

DRUGS (1)
  1. NEXAVAR [Suspect]
     Indication: RENAL CELL CARCINOMA
     Dosage: TOTAL DAILY DOSE: 800 MG  UNIT DOSE: 200 MG
     Route: 048
     Dates: start: 20091110, end: 20100310

REACTIONS (5)
  - ASCITES [None]
  - ATRIAL FIBRILLATION [None]
  - DECREASED APPETITE [None]
  - MALIGNANT PLEURAL EFFUSION [None]
  - PLATELET COUNT DECREASED [None]
